FAERS Safety Report 8067825-5 (Version None)
Quarter: 2012Q1

REPORT INFORMATION
  Report Type: 
  Country: None (occurrence: None)
  Receive Date: 20120124
  Receipt Date: 20120117
  Transmission Date: 20120608
  Serious: No
  Sender: FDA-Public Use
  Company Number: US-B.I. PHARMACEUTICALS,INC./RIDGEFIELD-2011-BP-25490BP

PATIENT
  Sex: Female

DRUGS (6)
  1. POTASSIUM GLUCONATE TAB [Concomitant]
     Indication: MUSCLE SPASMS
     Route: 048
     Dates: start: 20101201, end: 20111201
  2. COQ-10 [Concomitant]
     Indication: CARDIAC DISORDER
     Dosage: 100 MG
     Route: 048
     Dates: start: 20080101
  3. ASPIRIN [Concomitant]
     Indication: CARDIAC DISORDER
     Dosage: 81 MG
     Route: 048
     Dates: start: 20080101
  4. MICARDIS HCT [Suspect]
     Indication: HYPERTENSION
     Route: 048
     Dates: start: 20101201, end: 20101201
  5. GLUCOSAMINE [Concomitant]
     Route: 048
     Dates: start: 20101201, end: 20101201
  6. CALCIUM [Concomitant]
     Indication: SUPPLEMENTATION THERAPY
     Route: 048
     Dates: start: 20090101

REACTIONS (6)
  - MUSCLE SPASMS [None]
  - MUSCULAR WEAKNESS [None]
  - BALANCE DISORDER [None]
  - RHINORRHOEA [None]
  - SINUS DISORDER [None]
  - DIZZINESS [None]
